FAERS Safety Report 5452866-4 (Version None)
Quarter: 2007Q3

REPORT INFORMATION
  Report Type: 
  Country: None (occurrence: None)
  Receive Date: 20070914
  Receipt Date: 20070906
  Transmission Date: 20080115
  Serious: Yes (Hospitalization)
  Sender: FDA-Public Use
  Company Number: DE-ROCHE-512540

PATIENT
  Age: 76 Year
  Sex: Male
  Weight: 81 kg

DRUGS (2)
  1. CAPECITABINE [Suspect]
     Dosage: GIVEN ON DAYS 1-14 OF 21 DAYS CYCLE.
     Route: 048
     Dates: start: 20070124
  2. ALLOPURINOL [Concomitant]

REACTIONS (2)
  - CHOLANGITIS [None]
  - PYREXIA [None]
